FAERS Safety Report 15833256 (Version 2)
Quarter: 2019Q1

REPORT INFORMATION
  Report Type: Report from Study
  Country: CA (occurrence: CA)
  Receive Date: 20190116
  Receipt Date: 20190118
  Transmission Date: 20190417
  Serious: Yes (Other)
  Sender: FDA-Public Use
  Company Number: CA-GLAXOSMITHKLINE-CA2018GSK186530

PATIENT
  Sex: Female
  Weight: 64 kg

DRUGS (2)
  1. MEPOLIZUMAB [Suspect]
     Active Substance: MEPOLIZUMAB
     Indication: ASTHMA
     Dosage: 100 MG, Z (MONTHLY)
     Route: 042
  2. MEPOLIZUMAB [Suspect]
     Active Substance: MEPOLIZUMAB
     Dosage: UNK

REACTIONS (6)
  - Condition aggravated [Unknown]
  - Lung neoplasm malignant [Unknown]
  - Weight increased [Unknown]
  - Mobility decreased [Unknown]
  - Visual impairment [Unknown]
  - Weight decreased [Unknown]
